FAERS Safety Report 7624712-1 (Version None)
Quarter: 2011Q3

REPORT INFORMATION
  Report Type: 
  Country: None (occurrence: None)
  Receive Date: 20110720
  Receipt Date: 20110622
  Transmission Date: 20111222
  Serious: No
  Sender: FDA-Public Use
  Company Number: US-BAYER-2011-053594

PATIENT
  Age: 58 Year
  Sex: Female
  Weight: 83 kg

DRUGS (10)
  1. KLOR-CON [Concomitant]
     Dosage: UNK
     Dates: start: 20100601
  2. AMPYRA [Concomitant]
     Indication: GAIT DISTURBANCE
     Dosage: 10 MG, QS
     Dates: start: 20101001
  3. BACLOFEN [Concomitant]
     Indication: MUSCULOSKELETAL STIFFNESS
     Dosage: UNK
     Dates: start: 20080101
  4. CALCIUM CARBONATE [Concomitant]
     Dosage: UNK
  5. IBUPROFEN [Concomitant]
     Dosage: UNK
     Dates: start: 20050101
  6. LEVOTHYROXINE SODIUM [Concomitant]
     Dosage: UNK
     Dates: start: 19980101
  7. FUROSEMIDE [Concomitant]
     Dosage: UNK
     Dates: start: 20100601
  8. CIPROFLOXACIN HCL [Suspect]
     Indication: URINARY TRACT INFECTION
     Dosage: 500 MG, BID
     Route: 048
     Dates: start: 20110614
  9. VITAMINS NOS [Concomitant]
     Dosage: UNK
  10. COPAXONE [Concomitant]
     Dosage: UNK

REACTIONS (2)
  - GAIT DISTURBANCE [None]
  - MUSCULOSKELETAL STIFFNESS [None]
